FAERS Safety Report 4775871-X (Version None)
Quarter: 2005Q3

REPORT INFORMATION
  Report Type: 
  Country: None (occurrence: None)
  Receive Date: 20050914
  Receipt Date: 20050324
  Transmission Date: 20060218
  Serious: Yes (Hospitalization, Other)
  Sender: FDA-Public Use
  Company Number: 163-20785-05030683

PATIENT
  Age: 67 Year
  Sex: Male

DRUGS (20)
  1. THALOMID [Suspect]
     Indication: MULTIPLE MYELOMA
     Dosage: SEE IMAGE
     Route: 048
     Dates: start: 20041101, end: 20040101
  2. THALOMID [Suspect]
     Indication: MULTIPLE MYELOMA
     Dosage: SEE IMAGE
     Route: 048
     Dates: start: 20040810, end: 20040810
  3. THALOMID [Suspect]
     Indication: MULTIPLE MYELOMA
     Dosage: SEE IMAGE
     Route: 048
     Dates: start: 20040811, end: 20040811
  4. THALOMID [Suspect]
     Indication: MULTIPLE MYELOMA
     Dosage: SEE IMAGE
     Route: 048
     Dates: start: 20040812, end: 20040812
  5. THALOMID [Suspect]
     Indication: MULTIPLE MYELOMA
     Dosage: SEE IMAGE
     Route: 048
     Dates: start: 20040813, end: 20040813
  6. THALOMID [Suspect]
     Indication: MULTIPLE MYELOMA
     Dosage: SEE IMAGE
     Route: 048
     Dates: start: 20040924, end: 20040927
  7. THALOMID [Suspect]
     Indication: MULTIPLE MYELOMA
     Dosage: SEE IMAGE
     Route: 048
     Dates: start: 20041015, end: 20041020
  8. THALOMID [Suspect]
     Indication: MULTIPLE MYELOMA
     Dosage: SEE IMAGE
     Route: 048
     Dates: start: 20041228, end: 20050110
  9. MELPHALAN (MELPHALAN) (UNKNOWN) [Suspect]
     Indication: MULTIPLE MYELOMA
     Dosage: 400 MG, UNKNOWN, INTRAVENOUS
     Route: 042
     Dates: start: 20041026, end: 20041026
  10. DEXAMETHASONE [Suspect]
     Indication: MULTIPLE MYELOMA
     Dosage: 20 MG, QD X 4 DAYS Q 3 WEEKS, ORAL
     Route: 048
     Dates: start: 20041101
  11. CEFEPIME (CEFEPIME) [Concomitant]
  12. VANCOMYCIN [Concomitant]
  13. AMBISOME [Concomitant]
  14. ACYCLOVIR [Concomitant]
  15. GLYBURIDE [Concomitant]
  16. PROTONIX [Concomitant]
  17. NIACIN [Concomitant]
  18. ATENOLOL [Concomitant]
  19. PLAVIX [Concomitant]
  20. PRAVACHOL [Concomitant]

REACTIONS (4)
  - ADENOVIRUS INFECTION [None]
  - MYOCARDIAL INFARCTION [None]
  - PNEUMONIA [None]
  - TRACHEOBRONCHITIS [None]
